FAERS Safety Report 8490364-4 (Version None)
Quarter: 2012Q3

REPORT INFORMATION
  Report Type: 
  Country: None (occurrence: None)
  Receive Date: 20120705
  Receipt Date: 20120626
  Transmission Date: 20120928
  Serious: Yes (Other)
  Sender: FDA-Public Use
  Company Number: US-ASTRAZENECA-2012SE43075

PATIENT
  Age: 62 Year
  Sex: Female
  Weight: 86.2 kg

DRUGS (8)
  1. ASPIRIN [Concomitant]
     Route: 048
     Dates: start: 20090410
  2. XOPENEX [Concomitant]
     Route: 055
     Dates: start: 20090410
  3. NEXIUM [Suspect]
     Indication: GASTROOESOPHAGEAL REFLUX DISEASE
     Route: 048
     Dates: start: 20070101
  4. NEXIUM [Suspect]
     Route: 048
     Dates: start: 20080101
  5. PLAVIX [Concomitant]
     Route: 048
     Dates: start: 20090410
  6. VYTORIN [Concomitant]
     Indication: BLOOD CHOLESTEROL INCREASED
     Dosage: 10-40 MG DAILY
     Route: 048
     Dates: start: 20100101
  7. SYMBICORT [Suspect]
     Indication: CHRONIC OBSTRUCTIVE PULMONARY DISEASE
     Dosage: 80/4.5 MCG TWO TIMES A DAY
     Route: 055
     Dates: start: 20090101
  8. COREG CR [Concomitant]
     Route: 048
     Dates: start: 20090410

REACTIONS (8)
  - CHEST DISCOMFORT [None]
  - POLLAKIURIA [None]
  - BREATH SOUNDS ABNORMAL [None]
  - ARTHROPATHY [None]
  - WEIGHT INCREASED [None]
  - CATARACT [None]
  - OFF LABEL USE [None]
  - CHAPPED LIPS [None]
